FAERS Safety Report 6546678-8 (Version None)
Quarter: 2010Q1

REPORT INFORMATION
  Report Type: 
  Country: None (occurrence: None)
  Receive Date: 20100122
  Receipt Date: 20100113
  Transmission Date: 20100710
  Serious: Yes (Hospitalization, Other)
  Sender: FDA-Public Use
  Company Number: US-PFIZER INC-2010005648

PATIENT
  Sex: Male
  Weight: 83 kg

DRUGS (10)
  1. TIKOSYN [Suspect]
     Indication: ATRIAL FIBRILLATION
     Dosage: FREQUENCY: 2X/DAY,
     Route: 048
     Dates: start: 20041004, end: 20091201
  2. LEVAQUIN [Interacting]
     Indication: INFECTION
  3. LISINOPRIL [Concomitant]
     Indication: HYPERTENSION
     Dosage: UNK
  4. METFORMIN HYDROCHLORIDE [Concomitant]
     Indication: DIABETES MELLITUS
     Dosage: UNK
  5. WARFARIN [Concomitant]
     Dosage: UNK
  6. LASIX [Concomitant]
     Dosage: UNK
  7. DIGITEK [Concomitant]
     Indication: ARRHYTHMIA
     Dosage: UNK
  8. METOPROLOL [Concomitant]
     Dosage: UNK
  9. ALLOPURINOL [Concomitant]
     Indication: GOUT
     Dosage: UNK
  10. INHALED HUMAN INSULIN [Concomitant]
     Indication: DIABETES MELLITUS

REACTIONS (4)
  - DRUG INTERACTION [None]
  - ELECTROCARDIOGRAM QT PROLONGED [None]
  - INFECTION [None]
  - SYNCOPE [None]
